FAERS Safety Report 4788686-3 (Version None)
Quarter: 2005Q4

REPORT INFORMATION
  Report Type: 
  Country: None (occurrence: None)
  Receive Date: 20051005
  Receipt Date: 20050831
  Transmission Date: 20060501
  Serious: Yes (Hospitalization, Other)
  Sender: FDA-Public Use
  Company Number: US-MERCK-0509USA00161

PATIENT
  Age: 41 Year
  Sex: Male

DRUGS (2)
  1. HYZAAR [Suspect]
     Indication: HYPERTENSION
     Route: 048
  2. COZAAR [Suspect]
     Indication: BLOOD PRESSURE
     Route: 048

REACTIONS (1)
  - ISCHAEMIC STROKE [None]
